FAERS Safety Report 7335961-4 (Version None)
Quarter: 2011Q1

REPORT INFORMATION
  Report Type: 
  Country: None (occurrence: None)
  Receive Date: 20110307
  Receipt Date: 20110303
  Transmission Date: 20110831
  Serious: Yes (Hospitalization)
  Sender: FDA-Public Use
  Company Number: GR-ABBOTT-11P-066-0708802-00

PATIENT
  Age: 38 Year
  Sex: Male
  Weight: 86.4 kg

DRUGS (8)
  1. OMEPRAZOLE [Concomitant]
     Indication: GASTRITIS PROPHYLAXIS
     Route: 048
  2. CORTISONE [Concomitant]
     Indication: RENAL TRANSPLANT
     Route: 048
     Dates: start: 20030101
  3. ASPIRIN [Concomitant]
     Indication: ATRIAL FIBRILLATION
     Route: 048
  4. AMLODIPINE [Concomitant]
     Indication: HYPERTENSION
     Route: 048
     Dates: start: 20090101
  5. SEVELAMER [Concomitant]
     Indication: HYPERPARATHYROIDISM SECONDARY
     Route: 048
  6. ERYTHROPOETIN [Concomitant]
     Indication: ANAEMIA
     Dosage: NOT RECEIVED SYSTEMATICALLY
  7. TACROLIMUS [Concomitant]
     Indication: RENAL TRANSPLANT
     Route: 048
     Dates: start: 20030101
  8. ZEMPLAR [Suspect]
     Indication: HYPERPARATHYROIDISM SECONDARY
     Dosage: DAILY
     Route: 048
     Dates: start: 20090719

REACTIONS (1)
  - ANAEMIA [None]
